FAERS Safety Report 13334576 (Version 1)
Quarter: 2017Q1

REPORT INFORMATION
  Report Type: Spontaneous
  Country: US (occurrence: US)
  Receive Date: 20170314
  Receipt Date: 20170314
  Transmission Date: 20170428
  Serious: Yes (Other)
  Sender: FDA-Public Use
  Company Number: US-TEVA-747970USA

PATIENT
  Age: 65 Year
  Sex: Female
  Weight: 72.64 kg

DRUGS (13)
  1. VITAMIN B12 [Concomitant]
     Active Substance: CYANOCOBALAMIN
  2. FER X [Concomitant]
     Indication: MINERAL SUPPLEMENTATION
  3. FORTEO [Concomitant]
     Active Substance: TERIPARATIDE
     Indication: BONE DENSITY ABNORMAL
     Dates: start: 201611
  4. ASPIRIN. [Concomitant]
     Active Substance: ASPIRIN
  5. PRAVASTATIN. [Concomitant]
     Active Substance: PRAVASTATIN
  6. METHENAMINE [Concomitant]
     Active Substance: METHENAMINE
     Indication: BLADDER DISORDER
     Dates: start: 2007
  7. CONCERTA [Concomitant]
     Active Substance: METHYLPHENIDATE HYDROCHLORIDE
     Indication: SLEEP DISORDER
  8. OMEPRAZOLE. [Concomitant]
     Active Substance: OMEPRAZOLE
     Dates: start: 2013
  9. AMLODIPINE [Concomitant]
     Active Substance: AMLODIPINE BESYLATE
     Indication: BLOOD PRESSURE MEASUREMENT
     Dates: start: 2013
  10. COPAXONE [Suspect]
     Active Substance: GLATIRAMER ACETATE
     Dosage: 20 MILLIGRAM DAILY;
     Dates: start: 1996
  11. LISINOPRIL. [Concomitant]
     Active Substance: LISINOPRIL
     Indication: BLOOD PRESSURE MEASUREMENT
     Dates: start: 2009
  12. COPAXONE [Suspect]
     Active Substance: GLATIRAMER ACETATE
     Indication: MULTIPLE SCLEROSIS
     Dates: start: 201612
  13. TIZANIDINE. [Concomitant]
     Active Substance: TIZANIDINE
     Indication: MUSCLE SPASTICITY
     Dates: start: 1998

REACTIONS (11)
  - Nausea [Recovered/Resolved]
  - Erythema [Recovered/Resolved]
  - Injection related reaction [Recovered/Resolved]
  - Heart rate increased [Recovered/Resolved]
  - Aphonia [Recovered/Resolved]
  - Eye disorder [Recovered/Resolved]
  - Tremor [Recovered/Resolved]
  - Pneumonia [Unknown]
  - Diplopia [Recovered/Resolved]
  - Visual impairment [Recovered/Resolved]
  - Vision blurred [Recovered/Resolved]

NARRATIVE: CASE EVENT DATE: 20170217
